FAERS Safety Report 13824296 (Version 2)
Quarter: 2017Q3

REPORT INFORMATION
  Report Type: Spontaneous
  Country: IT (occurrence: IT)
  Receive Date: 20170802
  Receipt Date: 20170926
  Transmission Date: 20171127
  Serious: Yes (Hospitalization, Other)
  Sender: FDA-Public Use
  Company Number: IT-BRISTOL-MYERS SQUIBB COMPANY-BMS-2017-064993

PATIENT
  Sex: Male

DRUGS (1)
  1. COUMADIN [Suspect]
     Active Substance: WARFARIN SODIUM
     Indication: PRODUCT USED FOR UNKNOWN INDICATION
     Dosage: 5 MG, UNK
     Route: 065

REACTIONS (3)
  - Escherichia urinary tract infection [Unknown]
  - Therapeutic embolisation [Recovered/Resolved with Sequelae]
  - Renal haematoma [Recovered/Resolved with Sequelae]

NARRATIVE: CASE EVENT DATE: 20160616
